FAERS Safety Report 14991959 (Version 1)
Quarter: 2018Q2

REPORT INFORMATION
  Report Type: Spontaneous
  Country: US (occurrence: US)
  Receive Date: 20180608
  Receipt Date: 20180608
  Transmission Date: 20180711
  Serious: No
  Sender: FDA-Public Use
  Company Number: US-009507513-1806USA001838

PATIENT
  Sex: Female
  Weight: 72.56 kg

DRUGS (1)
  1. NEXPLANON [Suspect]
     Active Substance: ETONOGESTREL
     Indication: CONTRACEPTION
     Dosage: 1 IMPLANT EVERY 3 YEARS,IN LEFT ARM
     Route: 059
     Dates: start: 20151117

REACTIONS (4)
  - Polymenorrhoea [Unknown]
  - Weight increased [Unknown]
  - Hypotension [Unknown]
  - Vaginal haemorrhage [Unknown]
